FAERS Safety Report 7178881-0 (Version None)
Quarter: 2010Q4

REPORT INFORMATION
  Report Type: 
  Country: None (occurrence: None)
  Receive Date: 20101217
  Receipt Date: 20101217
  Transmission Date: 20110411
  Serious: Yes (Other)
  Sender: FDA-Public Use
  Company Number: None

PATIENT
  Sex: Female
  Weight: 92.3 kg

DRUGS (1)
  1. REMICADE [Suspect]
     Indication: RHEUMATOID ARTHRITIS
     Dosage: 500MG EVERY 5 WEEKS IV
     Route: 042
     Dates: start: 20090401, end: 20101001

REACTIONS (2)
  - BRONCHITIS [None]
  - PSEUDOMONAS INFECTION [None]
